FAERS Safety Report 4342740-9 (Version None)
Quarter: 2004Q2

REPORT INFORMATION
  Report Type: 
  Country: None (occurrence: None)
  Receive Date: 20040415
  Receipt Date: 20040331
  Transmission Date: 20050107
  Serious: Yes (Other)
  Sender: FDA-Public Use
  Company Number: 183622

PATIENT
  Age: 50 Year
  Sex: Female

DRUGS (6)
  1. AVONEX [Suspect]
     Indication: MULTIPLE SCLEROSIS
     Dosage: 30 MCG QW IM
     Route: 030
     Dates: start: 20020507, end: 20030101
  2. AVONEX [Suspect]
     Indication: MULTIPLE SCLEROSIS
     Dosage: 30 MCG QW IM
     Route: 030
     Dates: start: 20030101, end: 20031014
  3. PREVACID [Concomitant]
  4. ATIVAN [Concomitant]
  5. EFFEXOR [Concomitant]
  6. LIPITOR [Concomitant]

REACTIONS (5)
  - FATIGUE [None]
  - HEPATIC STEATOSIS [None]
  - HEPATITIS [None]
  - OBESITY [None]
  - WEIGHT DECREASED [None]
